FAERS Safety Report 9825086 (Version 1)
Quarter: 2013Q4

REPORT INFORMATION
  Report Type: Spontaneous
  Country: US (occurrence: None)
  Receive Date: 20131028
  Receipt Date: 20131028
  Transmission Date: 20140711
  Serious: No
  Sender: FDA-Public Use
  Company Number: 2013US002282

PATIENT
  Age: 77 Year
  Sex: Female
  Weight: 58 kg

DRUGS (5)
  1. ICLUSIG [Suspect]
     Indication: CHRONIC MYELOID LEUKAEMIA
     Route: 048
     Dates: start: 20130621
  2. CIPRO (CIPROFLOXACIN HYDROCHLORIDE) [Concomitant]
  3. METOPROLOL (METOPROLOL) [Concomitant]
  4. ACYCLOVIR (ACYCLOVIR) [Concomitant]
  5. LASIIX (FUROSEMIDE SODIUM) [Concomitant]

REACTIONS (2)
  - Oedema peripheral [None]
  - Bone pain [None]
